FAERS Safety Report 6093604-4 (Version None)
Quarter: 2009Q1

REPORT INFORMATION
  Report Type: 
  Country: None (occurrence: None)
  Receive Date: 20090226
  Receipt Date: 20081217
  Transmission Date: 20090719
  Serious: Yes (Other)
  Sender: FDA-Public Use
  Company Number: PHHY2008IT33774

PATIENT
  Sex: Male

DRUGS (1)
  1. VOLTAREN OFTA (NVO) [Suspect]

REACTIONS (4)
  - EYE IRRITATION [None]
  - PHOTOPSIA [None]
  - RETINAL DETACHMENT [None]
  - VISUAL IMPAIRMENT [None]
